FAERS Safety Report 6221640-3 (Version None)
Quarter: 2009Q2

REPORT INFORMATION
  Report Type: 
  Country: None (occurrence: None)
  Receive Date: 20090610
  Receipt Date: 20090602
  Transmission Date: 20091009
  Serious: Yes (Other)
  Sender: FDA-Public Use
  Company Number: JP-ABBOTT-08P-087-0445520-00

PATIENT
  Sex: Male

DRUGS (4)
  1. LEUPLIN SR FOR INJECTION KIT [Suspect]
     Indication: PROSTATE CANCER
     Route: 058
     Dates: start: 20080124, end: 20080124
  2. LEUPLIN SR FOR INJECTION KIT [Suspect]
     Dates: start: 20071220, end: 20080124
  3. CASODEX [Suspect]
     Indication: PROSTATE CANCER
     Route: 048
     Dates: start: 20071122, end: 20080313
  4. CASODEX [Concomitant]
     Route: 048
     Dates: start: 20071101, end: 20080325

REACTIONS (1)
  - INTERSTITIAL LUNG DISEASE [None]
